FAERS Safety Report 5802583-3 (Version None)
Quarter: 2008Q3

REPORT INFORMATION
  Report Type: 
  Country: None (occurrence: None)
  Receive Date: 20080708
  Receipt Date: 20080624
  Transmission Date: 20090109
  Serious: Yes (Hospitalization, Other)
  Sender: FDA-Public Use
  Company Number: ES-ELI_LILLY_AND_COMPANY-ES200806005788

PATIENT
  Age: 88 Year
  Sex: Female

DRUGS (5)
  1. FORTEO [Suspect]
     Indication: OSTEOPOROSIS
     Dosage: 20 UG, UNKNOWN
     Route: 058
     Dates: start: 20070501, end: 20080615
  2. OPIREN [Concomitant]
     Dosage: UNK, UNKNOWN
     Route: 065
  3. FLUMIL                             /00082801/ [Concomitant]
     Dosage: UNK, UNKNOWN
     Route: 065
  4. SPIRIVA [Concomitant]
     Dosage: UNK, UNKNOWN
     Route: 065
  5. CALCIUM [Concomitant]
     Dosage: UNK, UNKNOWN
     Route: 065

REACTIONS (4)
  - BRONCHIAL DISORDER [None]
  - FALL [None]
  - PYREXIA [None]
  - UPPER LIMB FRACTURE [None]
